FAERS Safety Report 4781583-9 (Version None)
Quarter: 2005Q3

REPORT INFORMATION
  Report Type: 
  Country: None (occurrence: None)
  Receive Date: 20050927
  Receipt Date: 20050915
  Transmission Date: 20060218
  Serious: Yes (Other)
  Sender: FDA-Public Use
  Company Number: HQWYE362121JUL05

PATIENT
  Age: 78 Year
  Sex: Female

DRUGS (8)
  1. CONTROLOC (PANTOPRAZOLE, TABLET, DELAYED RELEASE) [Suspect]
     Indication: DUODENITIS
     Dosage: SEE IMAGE
     Route: 048
     Dates: start: 20041101, end: 20050513
  2. CONTROLOC (PANTOPRAZOLE, TABLET, DELAYED RELEASE) [Suspect]
     Indication: GASTRITIS
     Dosage: SEE IMAGE
     Route: 048
     Dates: start: 20041101, end: 20050513
  3. CONTROLOC (PANTOPRAZOLE, TABLET, DELAYED RELEASE) [Suspect]
     Indication: DUODENITIS
     Dosage: SEE IMAGE
     Route: 048
     Dates: start: 20050701
  4. CONTROLOC (PANTOPRAZOLE, TABLET, DELAYED RELEASE) [Suspect]
     Indication: GASTRITIS
     Dosage: SEE IMAGE
     Route: 048
     Dates: start: 20050701
  5. INHIBACE ^ANDREU^ (CILAZAPRIL) [Concomitant]
  6. SPIRONOLACTONE [Concomitant]
  7. XANAX [Concomitant]
  8. . [Concomitant]

REACTIONS (3)
  - CONDITION AGGRAVATED [None]
  - DEPRESSION [None]
  - NEUROSIS [None]
